FAERS Safety Report 22225094 (Version 1)
Quarter: 2023Q2

REPORT INFORMATION
  Report Type: Spontaneous
  Country: US (occurrence: US)
  Receive Date: 20230418
  Receipt Date: 20230418
  Transmission Date: 20230721
  Serious: No
  Sender: FDA-Public Use
  Company Number: US-BAYER-2023A050467

PATIENT
  Age: 9 Year
  Sex: Male

DRUGS (3)
  1. KOVALTRY [Suspect]
     Active Substance: ANTIHEMOPHILIC FACTOR, HUMAN RECOMBINANT
     Dosage: 1900 IU, PRN
  2. KOVALTRY [Suspect]
     Active Substance: ANTIHEMOPHILIC FACTOR, HUMAN RECOMBINANT
     Dosage: UNK, FOR THE HEAD INJURY TREATMENT
     Dates: start: 20230312, end: 20230312
  3. KOVALTRY [Suspect]
     Active Substance: ANTIHEMOPHILIC FACTOR, HUMAN RECOMBINANT
     Dosage: UNK, FOR THE HEAD INJURY TREATMENT
     Dates: start: 20230313, end: 20230313

REACTIONS (2)
  - Head injury [None]
  - Fall [None]

NARRATIVE: CASE EVENT DATE: 20230312
